FAERS Safety Report 8042864-9 (Version None)
Quarter: 2012Q1

REPORT INFORMATION
  Report Type: 
  Country: None (occurrence: None)
  Receive Date: 20120112
  Receipt Date: 20120102
  Transmission Date: 20120608
  Serious: No
  Sender: FDA-Public Use
  Company Number: SE-ABBOTT-11P-150-0879106-00

PATIENT
  Sex: Male

DRUGS (2)
  1. HUMIRA [Suspect]
     Route: 058
     Dates: start: 20101207, end: 20101207
  2. HUMIRA [Suspect]
     Indication: COLITIS MICROSCOPIC
     Route: 058
     Dates: start: 20101123, end: 20101123

REACTIONS (3)
  - VOMITING [None]
  - NAUSEA [None]
  - ABDOMINAL PAIN [None]
